FAERS Safety Report 11893597 (Version 2)
Quarter: 2016Q1

REPORT INFORMATION
  Report Type: Report from Study
  Country: US (occurrence: US)
  Receive Date: 20160106
  Receipt Date: 20160115
  Transmission Date: 20160526
  Serious: Yes (Hospitalization, Other)
  Sender: FDA-Public Use
  Company Number: US-BMSGILMSD-2015-0190585

PATIENT
  Age: 55 Year
  Sex: Male

DRUGS (1)
  1. EFAVIRENZ/EMTRICITABINE/TENOFOVIR DISOPROXIL FUMARATE [Suspect]
     Active Substance: EFAVIRENZ\EMTRICITABINE\TENOFOVIR DISOPROXIL FUMARATE
     Indication: HIV INFECTION
     Dosage: 1100 MG, UNK
     Route: 048

REACTIONS (2)
  - Appendicitis [Unknown]
  - Surgery [Unknown]

NARRATIVE: CASE EVENT DATE: 201512
